FAERS Safety Report 19765419 (Version 1)
Quarter: 2021Q3

REPORT INFORMATION
  Report Type: Report from Study
  Country: IT (occurrence: IT)
  Receive Date: 20210831
  Receipt Date: 20210831
  Transmission Date: 20211014
  Serious: Yes (Other)
  Sender: FDA-Public Use
  Company Number: IT-BAUSCH-BL-2021-028617

PATIENT
  Age: 25 Year
  Sex: Male

DRUGS (2)
  1. DIAZEPAM. [Suspect]
     Active Substance: DIAZEPAM
     Indication: DRUG ABUSE
     Route: 048
     Dates: start: 20210608, end: 20210608
  2. SODIUM VALPROATE [Suspect]
     Active Substance: VALPROATE SODIUM
     Indication: DRUG ABUSE
     Route: 048
     Dates: start: 20210608, end: 20210608

REACTIONS (4)
  - Sopor [Unknown]
  - Hypotension [Unknown]
  - Dysarthria [Unknown]
  - Drug abuse [Unknown]

NARRATIVE: CASE EVENT DATE: 20210608
